FAERS Safety Report 25328086 (Version 1)
Quarter: 2025Q2

REPORT INFORMATION
  Report Type: Report from Study
  Country: NZ (occurrence: NZ)
  Receive Date: 20250518
  Receipt Date: 20250518
  Transmission Date: 20250717
  Serious: Yes (Other)
  Sender: NOVARTIS
  Company Number: NZ-002147023-NVSC2023NZ208751

PATIENT
  Sex: Male

DRUGS (1)
  1. COSENTYX [Suspect]
     Active Substance: SECUKINUMAB
     Indication: Psoriasis
     Route: 058
     Dates: start: 20230922

REACTIONS (11)
  - Lip swelling [Unknown]
  - Somnolence [Unknown]
  - Myalgia [Unknown]
  - Sneezing [Unknown]
  - Headache [Unknown]
  - Rhinorrhoea [Unknown]
  - Neck pain [Unknown]
  - Secretion discharge [Unknown]
  - Pharyngitis [Unknown]
  - Abdominal discomfort [Unknown]
  - Product dose omission issue [Unknown]
